FAERS Safety Report 10082616 (Version 3)
Quarter: 2014Q3

REPORT INFORMATION
  Report Type: Spontaneous
  Country: IT (occurrence: IT)
  Receive Date: 20140416
  Receipt Date: 20140724
  Transmission Date: 20150326
  Serious: Yes (Death, Other)
  Sender: FDA-Public Use
  Company Number: IT-OTSUKA-US-2014-10564

PATIENT
  Age: 1 Year
  Sex: Male
  Weight: 9 kg

DRUGS (10)
  1. CARBAMAZEPINE. [Concomitant]
     Active Substance: CARBAMAZEPINE
     Indication: CONVULSION
     Dosage: 100 MG MILLIGRAM(S), UNK
     Route: 048
     Dates: start: 20140128, end: 20140202
  2. DEFIBROTIDE [Concomitant]
     Active Substance: DEFIBROTIDE (BOVINE)
     Indication: VENOOCCLUSIVE DISEASE
     Dosage: 240 MG MILLIGRAM(S), UNK
     Route: 042
     Dates: start: 20140127, end: 20140222
  3. URSODEOXYCHOLIC ACID [Concomitant]
     Active Substance: URSODIOL
     Indication: PRODUCT USED FOR UNKNOWN INDICATION
     Dosage: UNK
     Route: 065
     Dates: start: 20140305
  4. MELFALAN [Suspect]
     Active Substance: MELPHALAN
     Indication: NEUROBLASTOMA
     Dosage: 45 MG MILLIGRAM(S), UNK
     Route: 042
     Dates: start: 20140202, end: 20140202
  5. CIPROFLOXACIN. [Concomitant]
     Active Substance: CIPROFLOXACIN
     Indication: PROPHYLAXIS
     Dosage: 20 MG/KG, UNK
     Route: 065
     Dates: start: 20140204, end: 20140222
  6. ACICLOVIR [Concomitant]
     Active Substance: ACYCLOVIR
     Indication: PROPHYLAXIS
     Dosage: 30 MG MILLIGRAM(S), UNK
     Route: 065
     Dates: start: 20140207
  7. ACICLOVIR [Concomitant]
     Active Substance: ACYCLOVIR
     Dosage: UNK
     Route: 065
     Dates: start: 20140207
  8. BUSULFEX [Suspect]
     Active Substance: BUSULFAN
     Indication: NEUROBLASTOMA
     Dosage: 45.6 MG MILLIGRAM(S), UNK
     Route: 042
     Dates: start: 20140128, end: 20140201
  9. N-ACETYLCYSTEINE [Concomitant]
     Active Substance: ACETYLCYSTEINE
     Indication: PRODUCT USED FOR UNKNOWN INDICATION
     Dosage: UNK
     Route: 065
  10. MICAFUNGIN [Concomitant]
     Active Substance: MICAFUNGIN
     Indication: PROPHYLAXIS
     Dosage: 2 MG/KG, QD
     Route: 065
     Dates: start: 20140206, end: 20140306

REACTIONS (5)
  - Multi-organ failure [Fatal]
  - Ascites [Unknown]
  - Pyrexia [Unknown]
  - Mucosal inflammation [Unknown]
  - Venoocclusive liver disease [Fatal]

NARRATIVE: CASE EVENT DATE: 20140208
